FAERS Safety Report 16152486 (Version 1)
Quarter: 2019Q2

REPORT INFORMATION
  Report Type: Spontaneous
  Country: JP (occurrence: JP)
  Receive Date: 20190403
  Receipt Date: 20190403
  Transmission Date: 20190711
  Serious: Yes (Death)
  Sender: FDA-Public Use
  Company Number: JP-PFIZER INC-2019138066

PATIENT
  Age: 5 Decade
  Sex: Male

DRUGS (1)
  1. CHAMPIX 1MG [Suspect]
     Active Substance: VARENICLINE TARTRATE
     Indication: SMOKING CESSATION THERAPY
     Dosage: UNK

REACTIONS (1)
  - Acute myocardial infarction [Fatal]
